FAERS Safety Report 4973125-X (Version None)
Quarter: 2006Q2

REPORT INFORMATION
  Report Type: 
  Country: None (occurrence: None)
  Receive Date: 20060414
  Receipt Date: 20050928
  Transmission Date: 20061013
  Serious: Yes (Hospitalization)
  Sender: FDA-Public Use
  Company Number: US-MERCK-0509USA04445

PATIENT
  Age: 68 Year
  Sex: Female

DRUGS (1)
  1. VIOXX [Suspect]
     Route: 048
     Dates: start: 20030701, end: 20040101

REACTIONS (8)
  - DYSARTHRIA [None]
  - INJURY [None]
  - ISCHAEMIC CEREBRAL INFARCTION [None]
  - MASTOIDITIS [None]
  - MUCOUS MEMBRANE DISORDER [None]
  - SINUSITIS [None]
  - THALAMIC INFARCTION [None]
  - VENTRICULAR EXTRASYSTOLES [None]
